FAERS Safety Report 23752688 (Version 4)
Quarter: 2025Q2

REPORT INFORMATION
  Report Type: Spontaneous
  Country: US (occurrence: US)
  Receive Date: 20240417
  Receipt Date: 20250421
  Transmission Date: 20250717
  Serious: Yes (Hospitalization, Other)
  Sender: PFIZER
  Company Number: US-PFIZER INC-PV202400050025

PATIENT
  Age: 64 Year
  Sex: Female
  Weight: 54.422 kg

DRUGS (5)
  1. MEDROL [Suspect]
     Active Substance: METHYLPREDNISOLONE
     Indication: Inflammation
  2. MEDROL [Suspect]
     Active Substance: METHYLPREDNISOLONE
     Indication: Arthritis
     Dates: start: 202204
  3. MEDROL [Suspect]
     Active Substance: METHYLPREDNISOLONE
  4. MEDROL [Suspect]
     Active Substance: METHYLPREDNISOLONE
     Dates: start: 20230131
  5. MEDROL [Suspect]
     Active Substance: METHYLPREDNISOLONE
     Dates: start: 2024

REACTIONS (12)
  - Neoplasm malignant [Unknown]
  - Type 2 diabetes mellitus [Unknown]
  - Hypothermia [Unknown]
  - Loss of consciousness [Unknown]
  - Drug ineffective [Unknown]
  - Vulvovaginal mycotic infection [Unknown]
  - Oral candidiasis [Unknown]
  - Asthenia [Not Recovered/Not Resolved]
  - Muscular weakness [Not Recovered/Not Resolved]
  - Drug hypersensitivity [Unknown]
  - Weight decreased [Not Recovered/Not Resolved]
  - Off label use [Unknown]

NARRATIVE: CASE EVENT DATE: 20170101
